FAERS Safety Report 24903356 (Version 2)
Quarter: 2025Q2

REPORT INFORMATION
  Report Type: Spontaneous
  Country: NL (occurrence: NL)
  Receive Date: 20250130
  Receipt Date: 20250402
  Transmission Date: 20250716
  Serious: No
  Sender: RANBAXY
  Company Number: NL-ALMIRALL-NL-2024-3397

PATIENT
  Age: 34 Year
  Sex: Male

DRUGS (1)
  1. TILDRAKIZUMAB [Suspect]
     Active Substance: TILDRAKIZUMAB
     Indication: Psoriasis
     Route: 058
     Dates: start: 202401, end: 202408

REACTIONS (2)
  - Epstein-Barr virus infection reactivation [Recovering/Resolving]
  - Hepatitis viral [Recovering/Resolving]

NARRATIVE: CASE EVENT DATE: 20240101
